FAERS Safety Report 9161884 (Version 1)
Quarter: 2013Q1

REPORT INFORMATION
  Report Type: Spontaneous
  Country: US (occurrence: None)
  Receive Date: 20130220
  Receipt Date: 20130220
  Transmission Date: 20140127
  Serious: Yes (Hospitalization, Other)
  Sender: FDA-Public Use
  Company Number: AUR-APL-2013-01443

PATIENT
  Sex: Female
  Weight: 5.05 kg

DRUGS (1)
  1. GLIBENCLAMIDE [Suspect]
     Indication: PRODUCT USED FOR UNKNOWN INDICATION
     Route: 064

REACTIONS (5)
  - Hypoglycaemia [None]
  - Caesarean section [None]
  - Hyperhidrosis [None]
  - Supraventricular tachycardia [None]
  - Maternal drugs affecting foetus [None]
